FAERS Safety Report 12191163 (Version 1)
Quarter: 2016Q1

REPORT INFORMATION
  Report Type: Spontaneous
  Country: IT (occurrence: IT)
  Receive Date: 20160318
  Receipt Date: 20160318
  Transmission Date: 20160526
  Serious: Yes (Hospitalization)
  Sender: FDA-Public Use
  Company Number: IT-SA-2016SA053600

PATIENT
  Age: 78 Year
  Sex: Male

DRUGS (10)
  1. PLAVIX [Suspect]
     Active Substance: CLOPIDOGREL BISULFATE
     Indication: THROMBOSIS PROPHYLAXIS
     Route: 048
     Dates: start: 20160101, end: 20160120
  2. CARDIOASPIRIN [Suspect]
     Active Substance: ASPIRIN
     Indication: THROMBOSIS PROPHYLAXIS
     Route: 048
     Dates: start: 20160101, end: 20160120
  3. ZYLORIC [Concomitant]
     Active Substance: ALLOPURINOL
     Dosage: 300 MG DIVISIBLE TABLETS
     Route: 048
  4. PANTORC [Concomitant]
     Active Substance: PANTOPRAZOLE SODIUM
     Route: 048
  5. LASIX [Concomitant]
     Active Substance: FUROSEMIDE
     Route: 048
  6. BISOPROLOL HEMIFUMARATE [Concomitant]
     Active Substance: BISOPROLOL FUMARATE
     Route: 048
  7. TRIATEC [Concomitant]
     Active Substance: RAMIPRIL
     Indication: HYPERTENSION
     Route: 048
  8. NITRODERM [Concomitant]
     Active Substance: NITROGLYCERIN
     Route: 062
  9. TORVAST [Concomitant]
     Active Substance: ATORVASTATIN
     Dosage: 10 MG TABLET
  10. LASITONE [Concomitant]
     Active Substance: FUROSEMIDE\SPIRONOLACTONE
     Dosage: (FUROSEMIDE/SPIRONOLACTONE) - 25 MG + 37 MG HARD CAPSULES DOSE:1 UNIT(S)
     Route: 048

REACTIONS (2)
  - Haematuria [Recovering/Resolving]
  - Urethral injury [Recovering/Resolving]

NARRATIVE: CASE EVENT DATE: 20160120
